FAERS Safety Report 6399593-7 (Version None)
Quarter: 2009Q4

REPORT INFORMATION
  Report Type: 
  Country: None (occurrence: None)
  Receive Date: 20091014
  Receipt Date: 20091007
  Transmission Date: 20100525
  Serious: Yes (Other)
  Sender: FDA-Public Use
  Company Number: US-JNJFOC-20091002975

PATIENT
  Sex: Male
  Weight: 124.74 kg

DRUGS (11)
  1. DURAGESIC-100 [Suspect]
     Indication: BACK PAIN
     Dosage: NDC NUMBER 50458-036-05
     Route: 062
  2. SIMVASTATIN [Concomitant]
     Indication: BLOOD CHOLESTEROL
     Route: 048
  3. GABAPENTIN [Concomitant]
     Indication: NERVOUSNESS
     Route: 048
  4. AGGRENOX [Concomitant]
     Dosage: 25MG/200MG
     Route: 048
  5. AVODART [Concomitant]
     Indication: BENIGN PROSTATIC HYPERPLASIA
     Route: 048
  6. FLOMAX [Concomitant]
     Indication: BENIGN PROSTATIC HYPERPLASIA
     Route: 048
  7. TIZANIDINE HCL [Concomitant]
     Indication: DEPRESSION
     Route: 048
  8. TRIAMTERENE AND HYDROCHLOROTHIAZIDE [Concomitant]
     Route: 048
  9. METOPROLOL [Concomitant]
     Route: 048
  10. ANDROGEL [Concomitant]
     Dosage: 4 PUMPS
     Route: 061
  11. MORPHINE [Concomitant]
     Indication: PAIN
     Route: 048

REACTIONS (5)
  - INAPPROPRIATE SCHEDULE OF DRUG ADMINISTRATION [None]
  - MUSCLE TIGHTNESS [None]
  - ROAD TRAFFIC ACCIDENT [None]
  - SLEEP APNOEA SYNDROME [None]
  - SWELLING [None]
